FAERS Safety Report 21885426 (Version 1)
Quarter: 2023Q1

REPORT INFORMATION
  Report Type: Spontaneous
  Country: US (occurrence: US)
  Receive Date: 20230119
  Receipt Date: 20230119
  Transmission Date: 20230418
  Serious: No
  Sender: FDA-Public Use
  Company Number: US-SA-SAC20230119000414

PATIENT
  Sex: Female

DRUGS (3)
  1. DUPIXENT [Suspect]
     Active Substance: DUPILUMAB
     Indication: Asthma
     Dosage: 300 MG, QOW
     Route: 058
  2. LAGEVRIO [Concomitant]
     Active Substance: MOLNUPIRAVIR
     Dosage: 4 DF, BID; 200MG 4 TABLETS BY MOUTH TWICE DAILY FOR 5 DAYS
     Route: 048
  3. KERENDIA [Concomitant]
     Active Substance: FINERENONE
     Dosage: 10 MG, QD; DAILY

REACTIONS (5)
  - Cough [Unknown]
  - Sciatica [Recovering/Resolving]
  - Pain [Recovering/Resolving]
  - Somnolence [Unknown]
  - COVID-19 [Unknown]
